FAERS Safety Report 15938905 (Version 1)
Quarter: 2019Q1

REPORT INFORMATION
  Report Type: Spontaneous
  Country: JP (occurrence: JP)
  Receive Date: 20190208
  Receipt Date: 20190208
  Transmission Date: 20190417
  Serious: Yes (Hospitalization, Other)
  Sender: FDA-Public Use
  Company Number: JP-BAYER-2019-015627

PATIENT
  Age: 5 Decade
  Sex: Female

DRUGS (5)
  1. MIRENA [Suspect]
     Active Substance: LEVONORGESTREL
     Indication: MENORRHAGIA
  2. MIRENA [Suspect]
     Active Substance: LEVONORGESTREL
     Indication: MENORRHAGIA
     Dosage: 20 MCG/24HR, CONT
     Route: 015
  3. MIRENA [Suspect]
     Active Substance: LEVONORGESTREL
     Indication: ADENOMYOSIS
  4. MIRENA [Suspect]
     Active Substance: LEVONORGESTREL
     Indication: ADENOMYOSIS
  5. DIENOGEST [Suspect]
     Active Substance: DIENOGEST
     Indication: ADENOMYOSIS
     Dosage: DAILY DOSE 2 MG
     Route: 048

REACTIONS (4)
  - Metrorrhagia [Recovered/Resolved]
  - Anaemia [Recovered/Resolved]
  - Device dislocation [Recovered/Resolved]
  - Labelled drug-disease interaction medication error [None]
